FAERS Safety Report 22885225 (Version 2)
Quarter: 2023Q4

REPORT INFORMATION
  Report Type: Spontaneous
  Country: US (occurrence: US)
  Receive Date: 20230830
  Receipt Date: 20231010
  Transmission Date: 20240110
  Serious: No
  Sender: FDA-Public Use
  Company Number: US-JNJFOC-20230865335

PATIENT
  Age: 79 Year
  Sex: Female
  Weight: 66.8 kg

DRUGS (4)
  1. TECVAYLI [Suspect]
     Active Substance: TECLISTAMAB-CQYV
     Indication: Plasma cell myeloma
     Route: 058
     Dates: start: 20230309, end: 20230726
  2. ACYCLOVIR [Concomitant]
     Active Substance: ACYCLOVIR
  3. GABAPENTIN [Concomitant]
     Active Substance: GABAPENTIN
  4. BACTRIM [Concomitant]
     Active Substance: SULFAMETHOXAZOLE\TRIMETHOPRIM

REACTIONS (1)
  - Parvovirus infection [Recovered/Resolved]

NARRATIVE: CASE EVENT DATE: 20230730
